FAERS Safety Report 16952946 (Version 4)
Quarter: 2020Q1

REPORT INFORMATION
  Report Type: Spontaneous
  Country: GR (occurrence: GR)
  Receive Date: 20191023
  Receipt Date: 20200103
  Transmission Date: 20200409
  Serious: Yes (Death, Hospitalization)
  Sender: FDA-Public Use
  Company Number: NVSC2019GR011896

PATIENT
  Age: 87 Year
  Sex: Female

DRUGS (1)
  1. CARBIDOPA,ENTACAPONE,LEVODOPA [Suspect]
     Active Substance: CARBIDOPA\ENTACAPONE\LEVODOPA
     Indication: PARKINSON^S DISEASE
     Dosage: 50MG/200MG/200MG
     Route: 065

REACTIONS (13)
  - Cardiopulmonary failure [Fatal]
  - Incontinence [Unknown]
  - Cardio-respiratory distress [Fatal]
  - Abdominal distension [Recovered/Resolved]
  - Malabsorption [Not Recovered/Not Resolved]
  - Encephalopathy [Unknown]
  - Gastric pneumatosis [Recovered/Resolved]
  - Confusional state [Unknown]
  - Akinesia [Fatal]
  - Dysarthria [Fatal]
  - Autonomic nervous system imbalance [Unknown]
  - Hyperthermia [Fatal]
  - Muscle rigidity [Fatal]
